FAERS Safety Report 25478690 (Version 1)
Quarter: 2025Q2

REPORT INFORMATION
  Report Type: Spontaneous
  Country: GB (occurrence: GB)
  Receive Date: 20250625
  Receipt Date: 20250625
  Transmission Date: 20250716
  Serious: Yes (Other)
  Sender: AUROBINDO
  Company Number: GB-MHRA-MED-202506101449052050-QDZVM

PATIENT
  Age: 71 Year
  Sex: Female
  Weight: 79 kg

DRUGS (6)
  1. RAMIPRIL [Suspect]
     Active Substance: RAMIPRIL
     Indication: Adverse drug reaction
     Route: 065
     Dates: start: 20250501
  2. FELODIPINE [Suspect]
     Active Substance: FELODIPINE
     Indication: Sinus tachycardia
     Route: 065
     Dates: start: 20250501
  3. PROPRANOLOL [Concomitant]
     Active Substance: PROPRANOLOL HYDROCHLORIDE
     Indication: Migraine prophylaxis
     Route: 065
  4. OMEPRAZOLE [Concomitant]
     Active Substance: OMEPRAZOLE
     Indication: Adverse drug reaction
     Route: 065
  5. ATORVASTATIN [Concomitant]
     Active Substance: ATORVASTATIN
     Indication: Blood cholesterol
     Route: 065
  6. METFORMIN [Concomitant]
     Active Substance: METFORMIN HYDROCHLORIDE
     Indication: Type 2 diabetes mellitus
     Route: 065
     Dates: start: 2023

REACTIONS (2)
  - Joint swelling [Not Recovered/Not Resolved]
  - Sinus tachycardia [Unknown]

NARRATIVE: CASE EVENT DATE: 20250201
